FAERS Safety Report 5712853-5 (Version None)
Quarter: 2008Q2

REPORT INFORMATION
  Report Type: 
  Country: None (occurrence: None)
  Receive Date: 20080422
  Receipt Date: 20080418
  Transmission Date: 20081010
  Serious: Yes (Disabling)
  Sender: FDA-Public Use
  Company Number: B0510585A

PATIENT
  Age: 87 Year
  Sex: Female
  Weight: 48 kg

DRUGS (6)
  1. ARIXTRA [Suspect]
     Indication: DRUG USE FOR UNKNOWN INDICATION
     Dosage: 1.5MG PER DAY
     Route: 058
     Dates: start: 20080214, end: 20080225
  2. LANSOPRAZOLE [Suspect]
     Indication: DRUG USE FOR UNKNOWN INDICATION
     Dosage: 15MG PER DAY
     Route: 048
     Dates: start: 20080221, end: 20080222
  3. AM [Suspect]
     Indication: STOMACH DISCOMFORT
     Dosage: 1.3G PER DAY
     Route: 065
     Dates: start: 20080220, end: 20080222
  4. HYPEN [Concomitant]
     Route: 048
     Dates: end: 20080220
  5. NEO-MINOPHAGEN C [Concomitant]
     Route: 042
  6. MUCOSTA [Concomitant]
     Indication: GASTRITIS PROPHYLAXIS
     Dosage: 200MG PER DAY
     Route: 048
     Dates: start: 20080211, end: 20080220

REACTIONS (10)
  - ALANINE AMINOTRANSFERASE INCREASED [None]
  - BLOOD ALKALINE PHOSPHATASE INCREASED [None]
  - BLOOD BILIRUBIN INCREASED [None]
  - BLOOD LACTATE DEHYDROGENASE INCREASED [None]
  - GAMMA-GLUTAMYLTRANSFERASE INCREASED [None]
  - HEPATIC FUNCTION ABNORMAL [None]
  - MALAISE [None]
  - PYREXIA [None]
  - STOMACH DISCOMFORT [None]
  - WHITE BLOOD CELL COUNT INCREASED [None]
